FAERS Safety Report 7933451-9 (Version None)
Quarter: 2011Q4

REPORT INFORMATION
  Report Type: 
  Country: None (occurrence: None)
  Receive Date: 20111118
  Receipt Date: 20111029
  Transmission Date: 20120403
  Serious: Yes (Other)
  Sender: FDA-Public Use
  Company Number: 2011SP051320

PATIENT
  Sex: Male

DRUGS (3)
  1. PEG-INTRON [Suspect]
     Indication: HEPATITIS C
     Dates: start: 20111018
  2. RIBAVIRIN [Suspect]
     Indication: HEPATITIS C
     Dates: start: 20111018
  3. TELAPREVIR [Suspect]
     Indication: HEPATITIS C
     Dates: start: 20111018

REACTIONS (2)
  - RECTAL HAEMORRHAGE [None]
  - PROCTALGIA [None]
